FAERS Safety Report 11126930 (Version 1)
Quarter: 2015Q2

REPORT INFORMATION
  Report Type: Spontaneous
  Country: IT (occurrence: IT)
  Receive Date: 20150520
  Receipt Date: 20150520
  Transmission Date: 20150821
  Serious: Yes (Hospitalization, Other)
  Sender: FDA-Public Use
  Company Number: IT-BRISTOL-MYERS SQUIBB COMPANY-BMS-2015-029970

PATIENT
  Age: 50 Year
  Sex: Female

DRUGS (1)
  1. YERVOY [Suspect]
     Active Substance: IPILIMUMAB
     Indication: PRODUCT USED FOR UNKNOWN INDICATION
     Dosage: UNK
     Route: 065
     Dates: start: 201502, end: 201503

REACTIONS (6)
  - Endocrine disorder [Unknown]
  - Asthenia [Unknown]
  - Upper limb fracture [Unknown]
  - Fall [Unknown]
  - Pneumonia [Unknown]
  - Diarrhoea [Unknown]
